FAERS Safety Report 8184394-X (Version None)
Quarter: 2012Q1

REPORT INFORMATION
  Report Type: 
  Country: None (occurrence: None)
  Receive Date: 20120207
  Receipt Date: 20110118
  Transmission Date: 20120608
  Serious: Yes (Other)
  Sender: FDA-Public Use
  Company Number: 2011027416

PATIENT
  Age: 61 Year
  Sex: Female
  Weight: 104.3273 kg

DRUGS (19)
  1. NEXIUM [Concomitant]
  2. VIVAGLOBIN [Suspect]
     Indication: IMMUNODEFICIENCY COMMON VARIABLE
     Dosage: SEE IMAGE
     Route: 058
     Dates: start: 20090501
  3. AMBIEN [Concomitant]
  4. COUMADIN [Concomitant]
  5. CRESTOR [Concomitant]
  6. IPRATROPIUM BROMIDE [Concomitant]
  7. ALBUTEROL [Concomitant]
  8. VIVAGLOBIN [Suspect]
  9. VIVAGLOBIN [Suspect]
  10. LEXAPRO [Concomitant]
  11. TRICOR [Concomitant]
  12. XANAX [Concomitant]
  13. THEOCAP (THEOPHYLLINE) [Concomitant]
  14. COREG [Concomitant]
  15. REGLAN [Concomitant]
  16. VIVAGLOBIN [Suspect]
  17. SINGULAIR [Concomitant]
  18. PREDNISONE TAB [Concomitant]
  19. ADVAIR DISKUS 100/50 [Concomitant]

REACTIONS (3)
  - INFUSION SITE ERYTHEMA [None]
  - INFUSION SITE SWELLING [None]
  - THROMBOSIS [None]
